FAERS Safety Report 15426597 (Version 1)
Quarter: 2018Q3

REPORT INFORMATION
  Report Type: Spontaneous
  Country: FR (occurrence: FR)
  Receive Date: 20180925
  Receipt Date: 20180925
  Transmission Date: 20181010
  Serious: Yes (Death, Other)
  Sender: FDA-Public Use
  Company Number: FR-MYLANLABS-2018M1070090

PATIENT
  Age: 64 Year
  Sex: Female
  Weight: 48 kg

DRUGS (2)
  1. ACUPAN [Suspect]
     Active Substance: NEFOPAM HYDROCHLORIDE
     Indication: PAIN
     Dosage: 40(MG) EN 3 JOURS
     Route: 042
  2. TRAMADOL. [Suspect]
     Active Substance: TRAMADOL
     Indication: BACK PAIN
     Dosage: INCONNUE
     Route: 048

REACTIONS (3)
  - Faecaloma [Recovered/Resolved]
  - Large intestine perforation [Recovered/Resolved]
  - Septic shock [Fatal]

NARRATIVE: CASE EVENT DATE: 20170804
